FAERS Safety Report 6038292-8 (Version None)
Quarter: 2009Q1

REPORT INFORMATION
  Report Type: 
  Country: None (occurrence: None)
  Receive Date: 20090115
  Receipt Date: 20090107
  Transmission Date: 20090719
  Serious: Yes (Death, Other)
  Sender: FDA-Public Use
  Company Number: GB-PFIZER INC-2008100213

PATIENT

DRUGS (15)
  1. SILDENAFIL CITRATE [Suspect]
     Indication: PULMONARY HYPERTENSION
     Dosage: 0.3 MG, EVERY 4 HRS
     Dates: start: 20081121, end: 20081122
  2. NITRIC OXIDE [Concomitant]
  3. ALL OTHER THERAPEUTIC PRODUCTS [Concomitant]
  4. VECURONIUM BROMIDE [Concomitant]
  5. DOPAMINE [Concomitant]
     Dates: start: 20081118
  6. NORADRENALINE [Concomitant]
     Dates: start: 20081118
  7. ADRENALINE [Concomitant]
     Dates: start: 20081118
  8. MORPHINE HYDROCHLORIDE [Concomitant]
     Dates: start: 20081118
  9. HYDROCORTISONE [Concomitant]
     Dates: start: 20081121
  10. BENZYLPENICILLIN [Concomitant]
  11. GENTAMICIN [Concomitant]
  12. VITAMIN K [Concomitant]
  13. DOBUTAMINE [Concomitant]
  14. MILRINONE [Concomitant]
  15. HEPARIN [Concomitant]

REACTIONS (4)
  - CARDIO-RESPIRATORY ARREST [None]
  - DEATH [None]
  - DISEASE PROGRESSION [None]
  - SEPSIS [None]
